FAERS Safety Report 24564638 (Version 3)
Quarter: 2025Q1

REPORT INFORMATION
  Report Type: Spontaneous
  Country: JP (occurrence: JP)
  Receive Date: 20241030
  Receipt Date: 20250207
  Transmission Date: 20250409
  Serious: No
  Sender: GALDERMA
  Company Number: JP-GALDERMA-JP2024012878

PATIENT

DRUGS (7)
  1. NEMOLIZUMAB [Suspect]
     Active Substance: NEMOLIZUMAB
     Indication: Dermatitis atopic
     Route: 058
     Dates: start: 20240720, end: 20240720
  2. PROTOPIC [Concomitant]
     Active Substance: TACROLIMUS
     Indication: Dermatitis atopic
     Route: 061
     Dates: start: 20240713
  3. BILASTINE [Concomitant]
     Active Substance: BILASTINE
     Indication: Dermatitis atopic
     Route: 048
     Dates: start: 20240713
  4. MONTELUKAST [Concomitant]
     Active Substance: MONTELUKAST
     Indication: Dermatitis atopic
     Route: 048
     Dates: start: 20240713
  5. CHLORPHENIRAMINE MALEATE [Concomitant]
     Active Substance: CHLORPHENIRAMINE MALEATE
     Indication: Dermatitis atopic
     Route: 048
     Dates: start: 20240713
  6. HEPARINOID [Concomitant]
     Indication: Dermatitis atopic
     Route: 061
     Dates: start: 20240713
  7. BETAMETHASONE DIPROPIONATE [Concomitant]
     Active Substance: BETAMETHASONE DIPROPIONATE
     Indication: Dermatitis atopic
     Route: 061
     Dates: start: 20240713

REACTIONS (1)
  - Toxic skin eruption [Recovering/Resolving]

NARRATIVE: CASE EVENT DATE: 20240723
